FAERS Safety Report 8850714 (Version 1)
Quarter: 2012Q4

REPORT INFORMATION
  Report Type: 
  Country: DK (occurrence: DK)
  Receive Date: 20121019
  Receipt Date: 20121019
  Transmission Date: 20130627
  Serious: Yes (Hospitalization)
  Sender: FDA-Public Use
  Company Number: DK-BAYER-2012-108901

PATIENT
  Age: 46 Year
  Sex: Female

DRUGS (2)
  1. ULTRAVIST [Suspect]
     Indication: DIAGNOSTIC PROCEDURE
     Dosage: 70 ml, QD
     Route: 042
     Dates: start: 20121015, end: 20121015
  2. ULTRAVIST [Suspect]
     Indication: COMPUTERISED TOMOGRAM

REACTIONS (1)
  - Muscle spasms [Recovering/Resolving]
